FAERS Safety Report 8583393-3 (Version None)
Quarter: 2012Q3

REPORT INFORMATION
  Report Type: 
  Country: None (occurrence: None)
  Receive Date: 20120809
  Receipt Date: 20120726
  Transmission Date: 20120928
  Serious: Yes (Other)
  Sender: FDA-Public Use
  Company Number: US-ARROW-2012-13780

PATIENT

DRUGS (2)
  1. SOTALOL HCL [Suspect]
     Indication: SUPRAVENTRICULAR TACHYCARDIA
     Dosage: 80 MG BID TO 240 MG TID
     Route: 064
  2. SOTALOL HCL [Suspect]
     Indication: ATRIAL FIBRILLATION

REACTIONS (4)
  - PREMATURE DELIVERY [None]
  - BRADYCARDIA FOETAL [None]
  - FOETAL EXPOSURE DURING PREGNANCY [None]
  - SUPRAVENTRICULAR EXTRASYSTOLES [None]
